FAERS Safety Report 7794518-1 (Version None)
Quarter: 2011Q4

REPORT INFORMATION
  Report Type: 
  Country: None (occurrence: None)
  Receive Date: 20111004
  Receipt Date: 20110923
  Transmission Date: 20120403
  Serious: Yes (Other)
  Sender: FDA-Public Use
  Company Number: US-BAYER-2011-092052

PATIENT
  Age: 22 Year
  Sex: Female
  Weight: 59 kg

DRUGS (2)
  1. NSAID'S [Concomitant]
     Dosage: UNK
     Dates: start: 20091001
  2. DROSPIRENONE AND ETHINYL ESTRADIOL [Suspect]
     Dosage: UNK
     Dates: start: 20080101, end: 20091201

REACTIONS (3)
  - CHOLECYSTECTOMY [None]
  - DEPRESSION [None]
  - MENTAL DISORDER [None]
